FAERS Safety Report 23080207 (Version 1)
Quarter: 2023Q4

REPORT INFORMATION
  Report Type: Report from Study
  Country: CA (occurrence: None)
  Receive Date: 20231018
  Receipt Date: 20231018
  Transmission Date: 20240110
  Serious: Yes (Other)
  Sender: FDA-Public Use
  Company Number: 2023A234533

PATIENT
  Sex: Male

DRUGS (6)
  1. FASENRA [Suspect]
     Active Substance: BENRALIZUMAB
     Indication: Asthma
     Dosage: 30.0MG UNKNOWN
     Route: 058
     Dates: start: 20200109, end: 20210627
  2. SPIRIVA RESPIMAT [Concomitant]
     Active Substance: TIOTROPIUM BROMIDE
  3. SYMBICORT [Concomitant]
     Active Substance: BUDESONIDE\FORMOTEROL FUMARATE DIHYDRATE
     Dosage: 3 PUFFS BID AND 2PUFFS PRN
  4. SINGULAIR [Concomitant]
     Active Substance: MONTELUKAST SODIUM
  5. VENTOLIN [Concomitant]
     Active Substance: ALBUTEROL SULFATE
  6. STRATTERA [Concomitant]
     Active Substance: ATOMOXETINE HYDROCHLORIDE
     Dosage: 40.0MG UNKNOWN

REACTIONS (2)
  - Asthma [Unknown]
  - Drug ineffective [Unknown]
